FAERS Safety Report 9291018 (Version 1)
Quarter: 2013Q2

REPORT INFORMATION
  Report Type: Spontaneous
  Country: FR (occurrence: FR)
  Receive Date: 20130515
  Receipt Date: 20130515
  Transmission Date: 20140414
  Serious: Yes (Hospitalization)
  Sender: FDA-Public Use
  Company Number: FR-PFIZER INC-2013147995

PATIENT
  Age: 41 Year
  Sex: Female

DRUGS (7)
  1. EUPANTOL [Suspect]
     Indication: GASTROINTESTINAL HAEMORRHAGE
     Dosage: 40 MG, DAILY
     Route: 042
     Dates: start: 20130227, end: 20130309
  2. EUPANTOL [Suspect]
     Dosage: 40 MG, DAILY
     Route: 042
     Dates: start: 20130313, end: 20130406
  3. ZYVOXID [Concomitant]
     Dosage: UNK
     Dates: start: 20130227, end: 20130301
  4. ZYVOXID [Concomitant]
     Dosage: UNK
     Dates: start: 20130308, end: 20130313
  5. TIENAM [Concomitant]
     Dosage: UNK
     Dates: start: 20130227, end: 20130301
  6. TAMIFLU [Concomitant]
     Indication: BRONCHOPULMONARY ASPERGILLOSIS
     Dosage: UNK
     Dates: start: 20130227, end: 20130309
  7. AMBISOME [Concomitant]
     Dosage: UNK
     Dates: start: 20130308, end: 20130322

REACTIONS (1)
  - Drug reaction with eosinophilia and systemic symptoms [Recovered/Resolved]
